FAERS Safety Report 9614074 (Version 1)
Quarter: 2013Q4

REPORT INFORMATION
  Report Type: Spontaneous
  Country: JP (occurrence: JP)
  Receive Date: 20131011
  Receipt Date: 20131011
  Transmission Date: 20140711
  Serious: Yes (Death)
  Sender: FDA-Public Use
  Company Number: JP-ROCHE-1284995

PATIENT
  Age: 5 Year
  Sex: Male

DRUGS (5)
  1. AVASTIN [Suspect]
     Indication: MALIGNANT GLIOMA
     Route: 041
     Dates: start: 20130702, end: 20130924
  2. TEMODAL [Concomitant]
     Dosage: ADMINISTERED FOR FIVE DAYS
     Route: 048
     Dates: start: 20130313, end: 20130910
  3. DECADRON [Concomitant]
     Dosage: EVERYDAY MEDICATION
     Route: 048
     Dates: start: 20130313, end: 20130910
  4. NORVASC [Concomitant]
     Dosage: EVERYDAY MEDICATION
     Route: 048
     Dates: start: 20130313, end: 20130910
  5. INDERAL [Concomitant]
     Dosage: EVERYDAY MEDICATION
     Route: 048
     Dates: start: 20130313, end: 20130910

REACTIONS (1)
  - Pneumonia aspiration [Fatal]
